FAERS Safety Report 10583708 (Version 3)
Quarter: 2015Q1

REPORT INFORMATION
  Report Type: Report from Study
  Country: JP (occurrence: JP)
  Receive Date: 20141114
  Receipt Date: 20150327
  Transmission Date: 20150720
  Serious: Yes (Other)
  Sender: FDA-Public Use
  Company Number: JP-OTSUKA-JP-2014-18796

PATIENT

DRUGS (23)
  1. LANSOPRAZOLE. [Concomitant]
     Active Substance: LANSOPRAZOLE
     Indication: PRODUCT USED FOR UNKNOWN INDICATION
     Dosage: 15 MG MILLIGRAM(S), DAILY DOSE
     Route: 048
  2. FLUITRAN [Concomitant]
     Active Substance: TRICHLORMETHIAZIDE
     Indication: CARDIAC FAILURE
     Dosage: 1 MG MILLIGRAM(S), DAILY DOSE
     Route: 048
     Dates: start: 20140807, end: 20140808
  3. SIGMART [Concomitant]
     Active Substance: NICORANDIL
     Indication: PRODUCT USED FOR UNKNOWN INDICATION
     Dosage: 30 MG MILLIGRAM(S), DAILY DOSE
     Route: 048
  4. LACTEC G [Concomitant]
     Indication: PRODUCT USED FOR UNKNOWN INDICATION
     Dosage: 500 ML MILLILITRE(S), DAILY DOSE
     Route: 041
     Dates: start: 20140805, end: 20140806
  5. SIGMART [Concomitant]
     Active Substance: NICORANDIL
     Indication: CARDIAC FAILURE
     Dosage: 96 MG MILLIGRAM(S), DAILY DOSE
     Route: 041
     Dates: end: 20140814
  6. LOPERAMIDE HCL [Concomitant]
     Active Substance: LOPERAMIDE HYDROCHLORIDE
     Indication: PRODUCT USED FOR UNKNOWN INDICATION
     Dosage: 1 MG MILLIGRAM(S), DAILY DOSE
     Route: 048
  7. SAMSCA [Suspect]
     Active Substance: TOLVAPTAN
     Indication: OEDEMA DUE TO CARDIAC DISEASE
     Dosage: 3.75 MG MILLIGRAM(S), QAM
     Route: 048
     Dates: start: 20140809, end: 20140810
  8. SAMSCA [Suspect]
     Active Substance: TOLVAPTAN
     Dosage: 7.5 MG MILLIGRAM(S), QAM
     Route: 048
     Dates: start: 20140811, end: 20140814
  9. SOLDEM 3A [Concomitant]
     Active Substance: CARBOHYDRATES\POTASSIUM CHLORIDE\SODIUM CHLORIDE\SODIUM LACTATE
     Indication: PRODUCT USED FOR UNKNOWN INDICATION
     Dosage: 1000 ML MILLILITRE(S), DAILY DOSE
     Route: 041
     Dates: start: 20140804
  10. ALDACTONE [Concomitant]
     Active Substance: SPIRONOLACTONE
     Indication: CARDIAC FAILURE
     Dosage: 25 MG MILLIGRAM(S), DAILY DOSE
     Route: 048
  11. ALBUMIN TANNATE [Concomitant]
     Active Substance: ALBUMIN BOVINE\TANNIC ACID
     Indication: PRODUCT USED FOR UNKNOWN INDICATION
     Dosage: 2 DF DOSAGE FORM, DAILY DOSE
     Route: 048
  12. SUCRALFATE. [Concomitant]
     Active Substance: SUCRALFATE
     Indication: PRODUCT USED FOR UNKNOWN INDICATION
     Dosage: 30 ML MILLILITRE(S), DAILY DOSE
     Route: 048
  13. BAYASPIRIN [Concomitant]
     Active Substance: ASPIRIN
     Indication: PRODUCT USED FOR UNKNOWN INDICATION
     Dosage: 100 MG MILLIGRAM(S), DAILY DOSE
     Route: 048
  14. NOVO HEPARIN [Concomitant]
     Active Substance: HEPARIN SODIUM
     Indication: PROPHYLAXIS
     Dosage: 10 ML MILLILITRE(S), DAILY DOSE
     Route: 042
     Dates: start: 20140805
  15. ARTIST [Concomitant]
     Active Substance: CARVEDILOL
     Indication: CARDIAC FAILURE
     Dosage: 2.5 MG MILLIGRAM(S), DAILY DOSE
     Route: 048
  16. POSTERISAN F [Concomitant]
     Indication: PRODUCT USED FOR UNKNOWN INDICATION
     Dosage: 2 G GRAM(S), DAILY DOSE
     Route: 054
  17. OLIVES [Concomitant]
     Indication: PRODUCT USED FOR UNKNOWN INDICATION
     Dosage: 96 ML MILLILITRE(S), DAILY DOSE
     Route: 041
  18. SOLDEM 1 [Concomitant]
     Active Substance: DEXTROSE\SODIUM CHLORIDE\SODIUM LACTATE
     Indication: PRODUCT USED FOR UNKNOWN INDICATION
     Dosage: 500 ML MILLILITRE(S), DAILY DOSE
     Route: 041
  19. FERROMIA [Concomitant]
     Active Substance: FERROUS CITRATE
     Indication: PRODUCT USED FOR UNKNOWN INDICATION
     Dosage: 100 MG MILLIGRAM(S), DAILY DOSE
     Route: 048
     Dates: start: 20140812, end: 20140814
  20. LASIX M [Concomitant]
     Active Substance: FUROSEMIDE
     Indication: CARDIAC FAILURE
     Dosage: 2 ML MILLILITRE(S), DAILY DOSE
     Route: 041
     Dates: start: 20140806, end: 20140808
  21. LASIX M [Concomitant]
     Active Substance: FUROSEMIDE
     Indication: CARDIAC FAILURE
     Dosage: 40 MG MILLIGRAM(S), DAILY DOSE
     Route: 048
  22. GLUCOSE [Concomitant]
     Active Substance: DEXTROSE
     Indication: PRODUCT USED FOR UNKNOWN INDICATION
     Dosage: 86 ML MILLILITRE(S), DAILY DOSE
     Route: 042
  23. EPOETIN ALFA [Concomitant]
     Active Substance: ERYTHROPOIETIN
     Indication: PRODUCT USED FOR UNKNOWN INDICATION
     Dosage: 24 KIU IU(1000S), DAILY DOSE
     Route: 058
     Dates: start: 20140809, end: 20140809

REACTIONS (3)
  - Hepatic function abnormal [Recovered/Resolved]
  - Blood creatinine increased [Unknown]
  - Blood urea increased [Unknown]

NARRATIVE: CASE EVENT DATE: 20140815
